FAERS Safety Report 17185331 (Version 1)
Quarter: 2019Q4

REPORT INFORMATION
  Report Type: Spontaneous
  Country: US (occurrence: US)
  Receive Date: 20191220
  Receipt Date: 20191220
  Transmission Date: 20200122
  Serious: No
  Sender: FDA-Public Use
  Company Number: US-THERAPEUTICSMD-2019TMD03799

PATIENT
  Sex: Female
  Weight: 69.39 kg

DRUGS (2)
  1. IMVEXXY [Suspect]
     Active Substance: ESTRADIOL
     Indication: CYSTITIS
     Dosage: 10 ?G, 1X/DAY BEFORE BEDTIME
     Dates: start: 201904, end: 2019
  2. IMVEXXY [Suspect]
     Active Substance: ESTRADIOL
     Indication: VULVOVAGINAL DRYNESS
     Dosage: 10 ?G, 2X/WEEK BEFORE BEDTIME MONDAY AND THURSDAY NIGHTS
     Dates: start: 2019

REACTIONS (5)
  - Burning sensation [Recovered/Resolved]
  - Bladder disorder [Recovered/Resolved]
  - Off label use [Not Recovered/Not Resolved]
  - Skin odour abnormal [Recovered/Resolved]
  - Unevaluable event [Recovered/Resolved]

NARRATIVE: CASE EVENT DATE: 2019
